FAERS Safety Report 25320310 (Version 1)
Quarter: 2025Q2

REPORT INFORMATION
  Report Type: Spontaneous
  Country: IL (occurrence: US)
  Receive Date: 20250515
  Receipt Date: 20250515
  Transmission Date: 20250716
  Serious: Yes (Other)
  Sender: MERCK SHARP & DOHME LLC
  Company Number: IL-009507513-2283308

PATIENT
  Sex: Female

DRUGS (3)
  1. KEYTRUDA [Suspect]
     Active Substance: PEMBROLIZUMAB
     Dates: end: 202503
  2. AXITINIB [Suspect]
     Active Substance: AXITINIB
     Dates: end: 202503
  3. AXITINIB [Suspect]
     Active Substance: AXITINIB
     Dates: start: 20250425

REACTIONS (2)
  - Encephalitis [Unknown]
  - COVID-19 [Unknown]

NARRATIVE: CASE EVENT DATE: 20250101
